FAERS Safety Report 25668545 (Version 4)
Quarter: 2025Q3

REPORT INFORMATION
  Report Type: Spontaneous
  Country: US (occurrence: US)
  Receive Date: 20250812
  Receipt Date: 20250831
  Transmission Date: 20251021
  Serious: Yes (Hospitalization)
  Sender: IPSEN BIOPHARMACEUTICALS, INC.
  Company Number: US-IPSEN Group, Research and Development-2025-08703

PATIENT
  Sex: Female

DRUGS (10)
  1. IQIRVO [Suspect]
     Active Substance: ELAFIBRANOR
     Indication: Primary biliary cholangitis
  2. IQIRVO [Suspect]
     Active Substance: ELAFIBRANOR
     Dosage: 1 TABLET EVERY MORNING
     Route: 048
     Dates: start: 20240927
  3. URSODIOL [Concomitant]
     Active Substance: URSODIOL
  4. IBUPROFEN [Concomitant]
     Active Substance: IBUPROFEN
  5. HERBALS\TURMERIC [Concomitant]
     Active Substance: HERBALS\TURMERIC
  6. POTASSIUM CHLORIDE [Concomitant]
     Active Substance: POTASSIUM CHLORIDE
  7. LASIX [Concomitant]
     Active Substance: FUROSEMIDE
  8. ALENDRONATE SODIUM [Concomitant]
     Active Substance: ALENDRONATE SODIUM
  9. IRON [Concomitant]
     Active Substance: IRON
  10. OMEPRAZOLE [Concomitant]
     Active Substance: OMEPRAZOLE

REACTIONS (4)
  - Ammonia increased [Unknown]
  - Hepatic enzyme abnormal [Unknown]
  - Hospitalisation [Unknown]
  - Pancreatic operation [Unknown]
